FAERS Safety Report 4869695-2 (Version None)
Quarter: 2005Q4

REPORT INFORMATION
  Report Type: 
  Country: None (occurrence: None)
  Receive Date: 20051227
  Receipt Date: 20051222
  Transmission Date: 20060501
  Serious: Yes (Life-Threatening, Disabling)
  Sender: FDA-Public Use
  Company Number: TCI2005A05038

PATIENT
  Age: 58 Year
  Sex: Male

DRUGS (1)
  1. LANSAP 800 (LANSOPRAZOLE, CLARITHROMYCIN, AMOXICILLIN) (PREPARATION FO [Suspect]
     Indication: HELICOBACTER INFECTION
     Dosage: 1 CARD (0.5 CARD, 2 IN 1 D), PER ORAL
     Route: 048
     Dates: start: 20051105, end: 20051108

REACTIONS (7)
  - ABNORMAL BEHAVIOUR [None]
  - DEPRESSED LEVEL OF CONSCIOUSNESS [None]
  - HALLUCINATION [None]
  - INSOMNIA [None]
  - PAROSMIA [None]
  - PERSECUTORY DELUSION [None]
  - SUICIDE ATTEMPT [None]
